FAERS Safety Report 25904354 (Version 3)
Quarter: 2025Q4

REPORT INFORMATION
  Report Type: Report from Study
  Country: CA (occurrence: CA)
  Receive Date: 20251010
  Receipt Date: 20251114
  Transmission Date: 20260118
  Serious: Yes (Hospitalization, Other)
  Sender: ABBVIE
  Company Number: CA-ABBVIE-6495676

PATIENT
  Age: 37 Year
  Sex: Male

DRUGS (5)
  1. SKYRIZI [Suspect]
     Active Substance: RISANKIZUMAB-RZAA
     Indication: Crohn^s disease
     Route: 042
     Dates: start: 20250908, end: 20250908
  2. SKYRIZI [Suspect]
     Active Substance: RISANKIZUMAB-RZAA
     Indication: Crohn^s disease
     Dosage: WEEK 4
     Route: 042
     Dates: start: 20251006, end: 20251006
  3. SKYRIZI [Suspect]
     Active Substance: RISANKIZUMAB-RZAA
     Indication: Crohn^s disease
     Dosage: WEEK 8
     Route: 042
     Dates: start: 20251103
  4. PREDNISONE [Concomitant]
     Active Substance: PREDNISONE
     Indication: Product used for unknown indication
  5. RUPATADINE FUMARATE [Concomitant]
     Active Substance: RUPATADINE FUMARATE
     Indication: Product used for unknown indication

REACTIONS (11)
  - Skin disorder [Unknown]
  - Crohn^s disease [Unknown]
  - Obstruction gastric [Unknown]
  - Anastomotic obstruction [Unknown]
  - Hepatic steatosis [Unknown]
  - Hepatomegaly [Unknown]
  - Intestinal anastomosis complication [Unknown]
  - Fat tissue increased [Unknown]
  - Small intestinal obstruction [Recovered/Resolved]
  - Inguinal hernia [Unknown]
  - Prostatomegaly [Unknown]

NARRATIVE: CASE EVENT DATE: 20250101
